FAERS Safety Report 4269228-8 (Version None)
Quarter: 2004Q1

REPORT INFORMATION
  Report Type: 
  Country: None (occurrence: None)
  Receive Date: 20040109
  Receipt Date: 20031223
  Transmission Date: 20041129
  Serious: Yes (Hospitalization)
  Sender: FDA-Public Use
  Company Number: KDL050577

PATIENT
  Age: 67 Year
  Sex: Male
  Weight: 71.7 kg

DRUGS (11)
  1. PROCRIT [Suspect]
     Indication: ANAEMIA OF MALIGNANT DISEASE
     Dosage: 40000 U, WEEKLY, SC
     Route: 058
     Dates: start: 20020828, end: 20031001
  2. DEXTROPROPOXYPHENE NAPSILATE W/ AETAMINOPHEN [Concomitant]
  3. ALLOPURINOL [Concomitant]
  4. FAMOTIDINE [Concomitant]
  5. ESCITALOPRAM [Concomitant]
  6. HYDROXYCARBAMIDE [Concomitant]
  7. HYDROCODONE BITARTRATE AND ACETAMINOPHEN [Concomitant]
  8. LEVOFLOXACIN [Concomitant]
  9. CELECOXIB [Concomitant]
  10. BUSPIRONE HCL [Concomitant]
  11. POTASSIUM CITRATE [Concomitant]

REACTIONS (7)
  - BLADDER CANCER RECURRENT [None]
  - HAEMOGLOBIN DECREASED [None]
  - POST PROCEDURAL HAEMORRHAGE [None]
  - SPLENOMEGALY [None]
  - SURGICAL PROCEDURE REPEATED [None]
  - URINARY BLADDER HAEMORRHAGE [None]
  - WHITE BLOOD CELL COUNT INCREASED [None]
